FAERS Safety Report 7620330-X (Version None)
Quarter: 2011Q3

REPORT INFORMATION
  Report Type: 
  Country: None (occurrence: None)
  Receive Date: 20110719
  Receipt Date: 20110713
  Transmission Date: 20111222
  Serious: Yes (Other)
  Sender: FDA-Public Use
  Company Number: PHHY2011CA51387

PATIENT
  Sex: Female

DRUGS (1)
  1. ZOLEDRONOC ACID [Suspect]
     Indication: OSTEOPOROSIS
     Dosage: 5 MG, UNK
     Route: 042
     Dates: start: 20110606

REACTIONS (9)
  - HYPERTENSION [None]
  - TREMOR [None]
  - ASTHENIA [None]
  - HEART RATE INCREASED [None]
  - ANXIETY [None]
  - PAIN [None]
  - BODY TEMPERATURE INCREASED [None]
  - DIZZINESS [None]
  - NAUSEA [None]
